FAERS Safety Report 8007824-2 (Version None)
Quarter: 2011Q4

REPORT INFORMATION
  Report Type: 
  Country: None (occurrence: None)
  Receive Date: 20111227
  Receipt Date: 20111223
  Transmission Date: 20120403
  Serious: Yes (Death)
  Sender: FDA-Public Use
  Company Number: IE-B.I. PHARMACEUTICALS,INC./RIDGEFIELD-2011-UK-01406UK

PATIENT
  Age: 89 Year
  Sex: Male

DRUGS (13)
  1. BUMETANIDE [Concomitant]
     Indication: CARDIAC FAILURE
     Dosage: 2 MG
     Dates: end: 20111208
  2. CRESTOR [Concomitant]
     Indication: BLOOD CHOLESTEROL INCREASED
     Dates: start: 20111125, end: 20111208
  3. CARVEDILOL [Concomitant]
     Indication: CARDIAC FAILURE
     Dosage: 12.5 MG
     Dates: end: 20111203
  4. PRADAXA [Suspect]
     Indication: ATRIAL FIBRILLATION
     Dosage: 150 MG
     Route: 048
     Dates: start: 20111125, end: 20111208
  5. CARVEDILOL [Concomitant]
     Dosage: 6.25 MG
  6. XALATAN [Concomitant]
     Indication: GLAUCOMA
     Dosage: 1 RT
     Dates: end: 20111208
  7. DURAGESIC-100 [Concomitant]
     Indication: ANALGESIC THERAPY
     Dosage: 12 NR
  8. ALDACTONE [Concomitant]
     Indication: CARDIAC FAILURE
     Dosage: 25 MG
     Dates: end: 20111208
  9. AZOPT EYE DROPS [Concomitant]
     Dosage: 2 RT
  10. WARFARIN [Concomitant]
     Indication: ATRIAL FIBRILLATION
     Dosage: AS PER INR
     Dates: end: 20111110
  11. NEXIUM [Concomitant]
     Dosage: 40 MG
     Dates: start: 20111125, end: 20111208
  12. DIFLUCAN [Concomitant]
     Indication: OESOPHAGEAL CANDIDIASIS
     Dosage: 150 MG
     Dates: start: 20111207, end: 20111208
  13. TRAMADOL HCL [Concomitant]
     Indication: ANALGESIC THERAPY
     Dosage: 150 MG
     Dates: end: 20111208

REACTIONS (1)
  - GASTROINTESTINAL HAEMORRHAGE [None]
